FAERS Safety Report 17459498 (Version 5)
Quarter: 2020Q2

REPORT INFORMATION
  Report Type: Spontaneous
  Country: LT (occurrence: LT)
  Receive Date: 20200226
  Receipt Date: 20200511
  Transmission Date: 20200713
  Serious: Yes (Hospitalization, Other)
  Sender: FDA-Public Use
  Company Number: LT-MYLANLABS-2020M1020370

PATIENT
  Age: 32 Year
  Sex: Male

DRUGS (30)
  1. LERCANIDIPINE [Suspect]
     Active Substance: LERCANIDIPINE
     Indication: PRODUCT USED FOR UNKNOWN INDICATION
     Dosage: 10 MILLIGRAM, QD
     Route: 065
  2. FOSINOPRIL [Suspect]
     Active Substance: FOSINOPRIL
     Indication: PRODUCT USED FOR UNKNOWN INDICATION
     Dosage: 10 MILLIGRAM, QD
  3. QUETIAPINE. [Suspect]
     Active Substance: QUETIAPINE
     Indication: SCHIZOPHRENIA
     Dosage: UPTO 150 MG PER DAY
  4. QUETIAPINE. [Suspect]
     Active Substance: QUETIAPINE
     Dosage: 400 MG AND DOSE INCREASED TO 700 MGUNK
  5. MYCOPHENOLATE MOFETIL. [Suspect]
     Active Substance: MYCOPHENOLATE MOFETIL
     Dosage: MORNING AND EVENING
     Route: 065
  6. AMLODIPINE [Suspect]
     Active Substance: AMLODIPINE BESYLATE
     Indication: PRODUCT USED FOR UNKNOWN INDICATION
     Dosage: 10 MILLIGRAM, QD
     Route: 065
  7. DOXAZOSIN [Concomitant]
     Active Substance: DOXAZOSIN MESYLATE
     Indication: PRODUCT USED FOR UNKNOWN INDICATION
     Dosage: 4 MILLIGRAM, QD
     Route: 065
  8. TIAPRIDE [Suspect]
     Active Substance: TIAPRIDE
     Dosage: 150 MILLIGRAM, QD
     Route: 065
     Dates: start: 2018
  9. PALIPERIDONE. [Suspect]
     Active Substance: PALIPERIDONE
     Indication: SCHIZOPHRENIA
     Dosage: 100 MILLIGRAM, MONTHLY
     Route: 065
  10. VALGANCICLOVIR. [Suspect]
     Active Substance: VALGANCICLOVIR
     Indication: PRODUCT USED FOR UNKNOWN INDICATION
     Dosage: 450 MILLIGRAM, QD
  11. CLOZAPINE. [Suspect]
     Active Substance: CLOZAPINE
     Indication: SCHIZOPHRENIA
     Dosage: 50 MILLIGRAM, QD
     Route: 065
  12. ALLOPURINOL. [Suspect]
     Active Substance: ALLOPURINOL
     Indication: PRODUCT USED FOR UNKNOWN INDICATION
     Dosage: IN THE MORNING
     Route: 065
  13. QUETIAPINE. [Suspect]
     Active Substance: QUETIAPINE
     Dosage: 150 MILLIGRAM, QD
     Route: 065
     Dates: start: 2018
  14. RISPERIDONE. [Suspect]
     Active Substance: RISPERIDONE
     Indication: SCHIZOPHRENIA
     Dosage: UNK
     Route: 065
  15. METHYLPREDNISOLONE. [Suspect]
     Active Substance: METHYLPREDNISOLONE
     Indication: PRODUCT USED FOR UNKNOWN INDICATION
     Dosage: 8 MILLIGRAM, BID
     Route: 065
  16. METHYLPREDNISOLONE. [Suspect]
     Active Substance: METHYLPREDNISOLONE
     Dosage: IN THE MORNING
     Route: 065
  17. TACROLIMUS. [Suspect]
     Active Substance: TACROLIMUS
     Indication: PRODUCT USED FOR UNKNOWN INDICATION
     Dosage: 6 MILLIGRAM, QD
     Route: 065
  18. METOPROLOL SUCCINATE. [Suspect]
     Active Substance: METOPROLOL SUCCINATE
     Dosage: REDUCED DOSE
  19. MOXONIDINE [Suspect]
     Active Substance: MOXONIDINE
     Indication: PRODUCT USED FOR UNKNOWN INDICATION
     Dosage: 0.4 MILLIGRAM, QD
     Route: 065
  20. OMEPRAZOLE. [Suspect]
     Active Substance: OMEPRAZOLE
     Dosage: 20 UNK
     Route: 065
  21. MYCOPHENOLATE MOFETIL. [Suspect]
     Active Substance: MYCOPHENOLATE MOFETIL
     Dosage: 500 MG IN THE MORNING, 1000 MG IN THE EVENING
  22. OMEPRAZOLE. [Suspect]
     Active Substance: OMEPRAZOLE
     Indication: PRODUCT USED FOR UNKNOWN INDICATION
     Dosage: 20 MILLIGRAM, QD
  23. MYCOPHENOLATE MOFETIL. [Suspect]
     Active Substance: MYCOPHENOLATE MOFETIL
     Indication: PRODUCT USED FOR UNKNOWN INDICATION
     Dosage: 500 MILLIGRAM (IN MORNING); 1000 MG (IN EVENING)
     Route: 065
  24. METOPROLOL. [Suspect]
     Active Substance: METOPROLOL
     Dosage: 150 MILLIGRAM, QD
  25. TIAPRIDE [Suspect]
     Active Substance: TIAPRIDE
     Indication: SCHIZOPHRENIA
     Dosage: 100 MILLIGRAM, QD
  26. DOXAZOSIN [Concomitant]
     Active Substance: DOXAZOSIN MESYLATE
     Dosage: BEFORE SLEEP
     Route: 065
  27. OLANZAPINE. [Suspect]
     Active Substance: OLANZAPINE
     Indication: SCHIZOPHRENIA
     Dosage: UNK
  28. METOPROLOL. [Suspect]
     Active Substance: METOPROLOL
     Indication: PRODUCT USED FOR UNKNOWN INDICATION
     Dosage: IN THE MORNING
     Route: 065
  29. METOPROLOL. [Suspect]
     Active Substance: METOPROLOL
     Dosage: 47.5 MILLIGRAM
     Route: 065
  30. METOPROLOL SUCCINATE. [Suspect]
     Active Substance: METOPROLOL SUCCINATE
     Indication: PRODUCT USED FOR UNKNOWN INDICATION
     Dosage: 150 MILLIGRAM, QD

REACTIONS (13)
  - Schizophrenia [Unknown]
  - Delusion [Recovered/Resolved]
  - Delusional disorder, unspecified type [Recovered/Resolved]
  - Apathy [Recovered/Resolved]
  - Thinking abnormal [Not Recovered/Not Resolved]
  - Insomnia [Unknown]
  - Drug resistance [Unknown]
  - Therapeutic response changed [Recovered/Resolved]
  - Neuroleptic malignant syndrome [Unknown]
  - Drug ineffective [Unknown]
  - Condition aggravated [Recovered/Resolved]
  - Behaviour disorder [Recovered/Resolved]
  - Inappropriate affect [Unknown]
